FAERS Safety Report 9152566 (Version 1)
Quarter: 2013Q1

REPORT INFORMATION
  Report Type: Spontaneous
  Country: US (occurrence: US)
  Receive Date: 20130308
  Receipt Date: 20130308
  Transmission Date: 20140127
  Serious: Yes (Other)
  Sender: FDA-Public Use
  Company Number: US-PFIZER INC-2013079679

PATIENT
  Sex: Female
  Weight: 83.9 kg

DRUGS (2)
  1. CORGARD [Suspect]
     Indication: ATRIAL TACHYCARDIA
     Dosage: 40 MG, DAILY
  2. NADOLOL [Suspect]
     Indication: ATRIAL TACHYCARDIA
     Dosage: 40 MG, DAILY

REACTIONS (3)
  - Macular degeneration [Unknown]
  - Palpitations [Unknown]
  - Heart rate increased [Unknown]
